FAERS Safety Report 8790159 (Version 1)
Quarter: 2012Q4

REPORT INFORMATION
  Report Type: 
  Country: US (occurrence: US)
  Receive Date: 20120917
  Receipt Date: 20120917
  Transmission Date: 20130627
  Serious: Yes (Hospitalization)
  Sender: FDA-Public Use
  Company Number: US-BRISTOL-MYERS SQUIBB COMPANY-16967465

PATIENT
  Sex: Male

DRUGS (11)
  1. SUSTIVA [Suspect]
     Route: 048
  2. REYATAZ [Suspect]
     Route: 048
  3. ISENTRESS [Suspect]
     Dosage: Tabs
     Route: 048
  4. NORVIR [Suspect]
     Dosage: Caps
     Route: 048
  5. SECTRAL [Concomitant]
  6. COVERSYL [Concomitant]
  7. ELISOR [Concomitant]
  8. KARDEGIC [Concomitant]
  9. BACTRIM [Concomitant]
  10. PLAVIX [Concomitant]
  11. ASPEGIC [Concomitant]

REACTIONS (6)
  - Glomerulonephritis membranous [Unknown]
  - Cell death [Unknown]
  - Tubulointerstitial nephritis [Unknown]
  - Eosinophilia [Unknown]
  - Nephrotic syndrome [Unknown]
  - Cholestasis [Unknown]
